FAERS Safety Report 12883449 (Version 1)
Quarter: 2016Q4

REPORT INFORMATION
  Report Type: Spontaneous
  Country: US (occurrence: US)
  Receive Date: 20161025
  Receipt Date: 20161025
  Transmission Date: 20170207
  Serious: No
  Sender: FDA-Public Use
  Company Number: US-ELI_LILLY_AND_COMPANY-US201609011788

PATIENT
  Sex: Female

DRUGS (11)
  1. TURMERIC                           /01079602/ [Concomitant]
     Active Substance: TURMERIC
  2. VITAMIN D3 [Concomitant]
     Active Substance: CHOLECALCIFEROL
  3. CINNAMON                           /01647501/ [Concomitant]
     Active Substance: CINNAMON
  4. B COMPLEX                          /00322001/ [Concomitant]
     Active Substance: CALCIUM PANTOTHENATE\CYANOCOBALAMIN\NIACINAMIDE\PYRIDOXINE HYDROCHLORIDE\RIBOFLAVIN\THIAMINE HYDROCHLORIDE
  5. HUMALOG [Suspect]
     Active Substance: INSULIN LISPRO
     Indication: TYPE 1 DIABETES MELLITUS
     Dosage: UNK UNK, UNKNOWN
     Route: 058
     Dates: start: 2006
  6. IRON [Concomitant]
     Active Substance: IRON
  7. LIALDA [Concomitant]
     Active Substance: MESALAMINE
  8. FISH OIL [Concomitant]
     Active Substance: FISH OIL
  9. LOSARTAN. [Concomitant]
     Active Substance: LOSARTAN
  10. LACTAID [Concomitant]
     Active Substance: LACTASE
  11. CHROMIUM PICOLINATE [Concomitant]
     Active Substance: CHROMIUM PICOLINATE

REACTIONS (4)
  - Colitis [Not Recovered/Not Resolved]
  - Coeliac disease [Not Recovered/Not Resolved]
  - Gluten sensitivity [Not Recovered/Not Resolved]
  - Lactose intolerance [Not Recovered/Not Resolved]

NARRATIVE: CASE EVENT DATE: 2014
